FAERS Safety Report 7783431-1 (Version None)
Quarter: 2011Q3

REPORT INFORMATION
  Report Type: 
  Country: None (occurrence: None)
  Receive Date: 20110928
  Receipt Date: 20110928
  Transmission Date: 20111222
  Serious: Yes (Other)
  Sender: FDA-Public Use
  Company Number: None

PATIENT
  Age: 6 Year
  Sex: Male
  Weight: 18.143 kg

DRUGS (1)
  1. SINGULAIR [Suspect]
     Indication: ASTHMA
     Dosage: 1 TAB
     Route: 048

REACTIONS (7)
  - DISTURBANCE IN ATTENTION [None]
  - DEPRESSION [None]
  - CRYING [None]
  - SUICIDAL IDEATION [None]
  - ANXIETY [None]
  - ABNORMAL DREAMS [None]
  - AGGRESSION [None]
